FAERS Safety Report 24053001 (Version 1)
Quarter: 2024Q3

REPORT INFORMATION
  Report Type: Spontaneous
  Country: CN (occurrence: CN)
  Receive Date: 20240705
  Receipt Date: 20240705
  Transmission Date: 20241017
  Serious: Yes (Hospitalization)
  Sender: JOHNSON AND JOHNSON
  Company Number: CN-JNJFOC-20240703792

PATIENT
  Age: 56 Year
  Sex: Female

DRUGS (9)
  1. CHILDRENS MOTRIN [Suspect]
     Active Substance: IBUPROFEN
     Indication: Upper respiratory tract infection
     Route: 048
     Dates: start: 20240505, end: 20240507
  2. CHILDRENS MOTRIN [Suspect]
     Active Substance: IBUPROFEN
     Indication: Pain
  3. CHILDRENS MOTRIN [Suspect]
     Active Substance: IBUPROFEN
     Indication: Pyrexia
  4. HERBALS [Suspect]
     Active Substance: HERBALS
     Indication: Upper respiratory tract infection
     Dosage: 1 SACHET
     Route: 048
     Dates: start: 20240505, end: 20240507
  5. HERBALS [Suspect]
     Active Substance: HERBALS
     Indication: Pain
  6. HERBALS [Suspect]
     Active Substance: HERBALS
     Indication: Pyrexia
  7. BENORILATE\CHLORPHENIRAMINE\PSEUDOEPHEDRINE [Suspect]
     Active Substance: BENORILATE\CHLORPHENIRAMINE\PSEUDOEPHEDRINE
     Indication: Upper respiratory tract infection
     Route: 048
     Dates: start: 20240505, end: 20240507
  8. BENORILATE\CHLORPHENIRAMINE\PSEUDOEPHEDRINE [Suspect]
     Active Substance: BENORILATE\CHLORPHENIRAMINE\PSEUDOEPHEDRINE
     Indication: Pyrexia
  9. BENORILATE\CHLORPHENIRAMINE\PSEUDOEPHEDRINE [Suspect]
     Active Substance: BENORILATE\CHLORPHENIRAMINE\PSEUDOEPHEDRINE
     Indication: Pain

REACTIONS (4)
  - Product administered to patient of inappropriate age [Unknown]
  - Drug eruption [Recovering/Resolving]
  - Face oedema [Unknown]
  - Liver function test increased [Unknown]

NARRATIVE: CASE EVENT DATE: 20240505
